FAERS Safety Report 17630374 (Version 1)
Quarter: 2020Q2

REPORT INFORMATION
  Report Type: Spontaneous
  Country: US (occurrence: US)
  Receive Date: 20200402
  Receipt Date: 20200402
  Transmission Date: 20200713
  Serious: Yes (Other)
  Sender: FDA-Public Use
  Company Number: None

PATIENT
  Age: 5 Year
  Sex: Female
  Weight: 26.31 kg

DRUGS (10)
  1. GINKOBA [Concomitant]
     Active Substance: GINKGO
  2. CRESTOR [Concomitant]
     Active Substance: ROSUVASTATIN CALCIUM
  3. COLD AND FLU [Concomitant]
     Active Substance: ACETAMINOPHEN\CHLORPHENIRAMINE MALEATE
  4. MELATONIN [Concomitant]
     Active Substance: MELATONIN
  5. MULTIVITAMINS [Concomitant]
     Active Substance: VITAMINS
  6. IBRANCE [Suspect]
     Active Substance: PALBOCICLIB
     Indication: BREAST CANCER
     Dosage: ?          OTHER FREQUENCY:QD X 21 DAYS;?
     Route: 048
     Dates: start: 20200131, end: 20200401
  7. FEMARA [Concomitant]
     Active Substance: LETROZOLE
  8. VITAMIN D [Concomitant]
     Active Substance: VITAMIN D NOS
  9. MAGNESIUM GLYCINATE [Concomitant]
     Active Substance: MAGNESIUM GLYCINATE
  10. VITAMIN B12 [Concomitant]
     Active Substance: CYANOCOBALAMIN

REACTIONS (1)
  - Neutropenia [None]

NARRATIVE: CASE EVENT DATE: 20200401
